FAERS Safety Report 15989588 (Version 5)
Quarter: 2019Q4

REPORT INFORMATION
  Report Type: Spontaneous
  Country: US (occurrence: US)
  Receive Date: 20190221
  Receipt Date: 20191017
  Transmission Date: 20200122
  Serious: Yes (Other)
  Sender: FDA-Public Use
  Company Number: US-PFIZER INC-2019075840

PATIENT
  Age: 63 Year
  Sex: Female
  Weight: 65.76 kg

DRUGS (6)
  1. VITAMIN D3 [Concomitant]
     Active Substance: CHOLECALCIFEROL
     Indication: SUPPLEMENTATION THERAPY
     Dosage: UNK
     Dates: start: 1991
  2. XELJANZ XR [Suspect]
     Active Substance: TOFACITINIB CITRATE
     Indication: RHEUMATOID ARTHRITIS
     Dosage: 11 MG, DAILY
     Route: 048
     Dates: start: 20180817
  3. ACIPHEX [Concomitant]
     Active Substance: RABEPRAZOLE SODIUM
     Dosage: UNK
  4. XELJANZ XR [Suspect]
     Active Substance: TOFACITINIB CITRATE
     Dosage: 11 MG, UNK
     Dates: start: 20190405
  5. FISH OIL [Concomitant]
     Active Substance: FISH OIL
     Dosage: UNK
  6. POTASSIUM [Concomitant]
     Active Substance: POTASSIUM
     Dosage: UNK UNK, DAILY

REACTIONS (11)
  - Dysuria [Unknown]
  - Arthralgia [Unknown]
  - Weight decreased [Not Recovered/Not Resolved]
  - Renal disorder [Unknown]
  - Urinary tract infection [Unknown]
  - Blood cholesterol increased [Recovered/Resolved]
  - Haemorrhoids [Not Recovered/Not Resolved]
  - Dermatitis contact [Unknown]
  - Fall [Unknown]
  - Haemorrhoidal haemorrhage [Not Recovered/Not Resolved]
  - Dizziness [Unknown]

NARRATIVE: CASE EVENT DATE: 201902
